FAERS Safety Report 15014137 (Version 2)
Quarter: 2018Q3

REPORT INFORMATION
  Report Type: Report from Study
  Country: CA (occurrence: CA)
  Receive Date: 20180615
  Receipt Date: 20180711
  Transmission Date: 20181010
  Serious: Yes (Death)
  Sender: FDA-Public Use
  Company Number: CA-HLSUS-2018-CA-000939

PATIENT
  Sex: Male

DRUGS (6)
  1. VENTOLIN [Concomitant]
     Active Substance: ALBUTEROL SULFATE
  2. LITHIUM. [Concomitant]
     Active Substance: LITHIUM
  3. CRESTOR [Concomitant]
     Active Substance: ROSUVASTATIN CALCIUM
  4. NITRO SPRAY [Concomitant]
  5. PARIET [Concomitant]
     Active Substance: RABEPRAZOLE SODIUM
  6. CLOZARIL [Suspect]
     Active Substance: CLOZAPINE
     Indication: PRODUCT USED FOR UNKNOWN INDICATION
     Dosage: 450MG QHS
     Route: 048
     Dates: start: 20180306

REACTIONS (1)
  - Myocardial infarction [Fatal]
